FAERS Safety Report 6512191-7 (Version None)
Quarter: 2009Q4

REPORT INFORMATION
  Report Type: 
  Country: None (occurrence: None)
  Receive Date: 20091216
  Receipt Date: 20091201
  Transmission Date: 20100525
  Serious: Yes (Death)
  Sender: FDA-Public Use
  Company Number: B0614164A

PATIENT
  Sex: 0

DRUGS (6)
  1. MELPHALAN HYDROCHLORIDE [Suspect]
     Indication: STEM CELL TRANSPLANT
     Dosage: 140 MG/M2/PER DAY
  2. FLUDARABINE PHOSPHATE [Suspect]
     Indication: STEM CELL TRANSPLANT
     Dosage: 25 MG/M2/ PER DAY
  3. IBRITUMOMAB TIUXETAN (FORMULATION UNKNOWN) (IBRITUMOMAB TIUXETAN) [Suspect]
     Indication: STEM CELL TRANSPLANT
  4. TACROLIMUS [Concomitant]
  5. SIROLIMUS [Concomitant]
  6. RITUXIMAB [Concomitant]

REACTIONS (1)
  - SEPSIS [None]
